FAERS Safety Report 5411086-X (Version None)
Quarter: 2007Q3

REPORT INFORMATION
  Report Type: 
  Country: None (occurrence: None)
  Receive Date: 20070810
  Receipt Date: 20070801
  Transmission Date: 20080115
  Serious: Yes (Hospitalization, Disabling, Other)
  Sender: FDA-Public Use
  Company Number: AU-BRISTOL-MYERS SQUIBB COMPANY-13871561

PATIENT
  Age: 62 Year
  Sex: Male

DRUGS (2)
  1. CETUXIMAB [Suspect]
     Indication: NEOPLASM MALIGNANT
     Dosage: ALSO 14MAY07; WITHHELD ON 22JUN07, CONTINUING SINCE 02JUL07.
     Route: 042
     Dates: start: 20010618, end: 20010618
  2. RADIATION THERAPY [Suspect]
     Indication: NEOPLASM MALIGNANT
     Dates: start: 20010521, end: 20010709

REACTIONS (3)
  - DERMATITIS ACNEIFORM [None]
  - EXTREMITY NECROSIS [None]
  - RECALL PHENOMENON [None]
